FAERS Safety Report 5494100-5 (Version None)
Quarter: 2007Q4

REPORT INFORMATION
  Report Type: 
  Country: None (occurrence: None)
  Receive Date: 20071022
  Receipt Date: 20071009
  Transmission Date: 20080405
  Serious: Yes (Life-Threatening, Hospitalization, Other)
  Sender: FDA-Public Use
  Company Number: 2007S1000440

PATIENT
  Age: 86 Year
  Sex: Female
  Weight: 56 kg

DRUGS (12)
  1. CUBICIN [Suspect]
     Indication: BACTERAEMIA
     Dosage: 5.9 MG/ KG; Q24H; IV
     Route: 042
     Dates: start: 20070907, end: 20071009
  2. CUBICIN [Suspect]
     Indication: STAPHYLOCOCCAL INFECTION
     Dosage: 5.9 MG/ KG; Q24H; IV
     Route: 042
     Dates: start: 20070907, end: 20071009
  3. PYRIDIUM [Concomitant]
  4. PREDNISONE [Concomitant]
  5. COUMADIN [Concomitant]
  6. FLUTICASONE PROPIONATE W/SALMETEROL [Concomitant]
  7. REGLAN [Concomitant]
  8. RIFAMPIN [Concomitant]
  9. DILTIAZEM [Concomitant]
  10. MEGACE [Concomitant]
  11. PANTOPRAZOLE SODIUM [Concomitant]
  12. AMLODIPINE BESYLATE [Concomitant]

REACTIONS (1)
  - LUNG INFILTRATION [None]
